FAERS Safety Report 7883737-1 (Version None)
Quarter: 2011Q4

REPORT INFORMATION
  Report Type: 
  Country: None (occurrence: None)
  Receive Date: 20111031
  Receipt Date: 20111018
  Transmission Date: 20120403
  Serious: No
  Sender: FDA-Public Use
  Company Number: 2011P1009616

PATIENT
  Age: 11 Year
  Sex: Male

DRUGS (5)
  1. METHOTREXATE [Concomitant]
  2. DEXAMETHASONE [Suspect]
     Indication: B-CELL TYPE ACUTE LEUKAEMIA
     Dosage: PER PROTOCOL;
  3. PEGYLATED ASPARAGINASE [Concomitant]
  4. DAUNORUBICIN HCL [Concomitant]
  5. VINCRISTINE [Concomitant]

REACTIONS (5)
  - SYSTEMIC CANDIDA [None]
  - DYSPHAGIA [None]
  - OESOPHAGEAL STENOSIS [None]
  - OESOPHAGEAL ULCER [None]
  - REGURGITATION [None]
